APPROVED DRUG PRODUCT: LEVOTHYROXINE SODIUM
Active Ingredient: LEVOTHYROXINE SODIUM
Strength: 100MCG/VIAL
Dosage Form/Route: POWDER;INTRAVENOUS
Application: A208837 | Product #001
Applicant: DR REDDYS LABORATORIES LTD
Approved: Mar 27, 2020 | RLD: No | RS: No | Type: DISCN